FAERS Safety Report 21063746 (Version 2)
Quarter: 2022Q3

REPORT INFORMATION
  Report Type: Report from Study
  Country: CA (occurrence: CA)
  Receive Date: 20220711
  Receipt Date: 20220722
  Transmission Date: 20221027
  Serious: Yes (Hospitalization, Other)
  Sender: FDA-Public Use
  Company Number: CA-HLS-202201312

PATIENT
  Age: 63 Year
  Sex: Female

DRUGS (1)
  1. CLOZARIL [Suspect]
     Active Substance: CLOZAPINE
     Indication: Product used for unknown indication
     Route: 048
     Dates: start: 20090203

REACTIONS (7)
  - Neutropenia [Unknown]
  - COVID-19 [Unknown]
  - Influenza like illness [Unknown]
  - Asthenia [Unknown]
  - Hyperthermia [Unknown]
  - Breast cancer [Unknown]
  - White blood cell count [Unknown]

NARRATIVE: CASE EVENT DATE: 20220704
